FAERS Safety Report 6806456-9 (Version None)
Quarter: 2010Q2

REPORT INFORMATION
  Report Type: 
  Country: None (occurrence: None)
  Receive Date: 20100629
  Receipt Date: 20080211
  Transmission Date: 20101027
  Serious: No
  Sender: FDA-Public Use
  Company Number: US-PFIZER INC-2008013992

PATIENT
  Sex: Female
  Weight: 86.4 kg

DRUGS (2)
  1. ARTHROTEC [Suspect]
     Indication: PLANTAR FASCIITIS
     Dates: start: 20080208, end: 20080210
  2. PREMARIN [Concomitant]
     Indication: HORMONE REPLACEMENT THERAPY

REACTIONS (1)
  - ABDOMINAL DISCOMFORT [None]
